FAERS Safety Report 9468639 (Version 2)
Quarter: 2013Q3

REPORT INFORMATION
  Report Type: Spontaneous
  Country: IT (occurrence: IT)
  Receive Date: 20130821
  Receipt Date: 20130930
  Transmission Date: 20140515
  Serious: Yes (Hospitalization)
  Sender: FDA-Public Use
  Company Number: IT-BRISTOL-MYERS SQUIBB COMPANY-19182716

PATIENT
  Age: 91 Year
  Sex: Female

DRUGS (8)
  1. COUMADIN TABS 5 MG [Suspect]
     Indication: ATRIAL FIBRILLATION
     Dosage: 1 DF: 1UNIT NOS
     Route: 048
     Dates: start: 20080101, end: 20130506
  2. PLAVIX TABS [Suspect]
     Indication: ANGIOPLASTY
     Dosage: 1 DF: 1UNIT NOS.STRENGTH:75MG
     Route: 048
     Dates: start: 20130101, end: 20130506
  3. MINITRAN [Concomitant]
  4. LASIX [Concomitant]
     Dosage: 25 MG TABS
  5. ESOPRAL [Concomitant]
  6. LORTAAN [Concomitant]
  7. ROCALTROL [Concomitant]
  8. ALDACTONE [Concomitant]

REACTIONS (1)
  - Diverticular perforation [Recovered/Resolved]
